FAERS Safety Report 21174793 (Version 1)
Quarter: 2022Q3

REPORT INFORMATION
  Report Type: Spontaneous
  Country: CA (occurrence: CA)
  Receive Date: 20220805
  Receipt Date: 20220805
  Transmission Date: 20221026
  Serious: Yes (Other)
  Sender: FDA-Public Use
  Company Number: CA-TAKEDA-2022TUS051123

PATIENT
  Age: 40 Year
  Sex: Female

DRUGS (3)
  1. HUMAN IMMUNOGLOBULIN G [Suspect]
     Active Substance: HUMAN IMMUNOGLOBULIN G
     Indication: Primary immunodeficiency syndrome
     Dosage: 10 GRAM, 1/WEEK
     Route: 058
  2. COVID-19 VACCINE NOS [Suspect]
     Active Substance: COVID-19 VACCINE NOS
     Indication: COVID-19 immunisation
     Dosage: UNK
     Route: 030
  3. HIZENTRA [Concomitant]
     Active Substance: HUMAN IMMUNOGLOBULIN G
     Dosage: 10 MILLILITER
     Route: 065

REACTIONS (30)
  - Anxiety [Not Recovered/Not Resolved]
  - Asthenia [Not Recovered/Not Resolved]
  - Asthma [Not Recovered/Not Resolved]
  - Blindness [Not Recovered/Not Resolved]
  - Blood immunoglobulin G decreased [Not Recovered/Not Resolved]
  - Blood pressure increased [Not Recovered/Not Resolved]
  - COVID-19 [Not Recovered/Not Resolved]
  - Drug ineffective [Not Recovered/Not Resolved]
  - Condition aggravated [Not Recovered/Not Resolved]
  - Contusion [Not Recovered/Not Resolved]
  - Feeling abnormal [Not Recovered/Not Resolved]
  - Gastrointestinal disorder [Not Recovered/Not Resolved]
  - Glaucoma [Not Recovered/Not Resolved]
  - Heart rate decreased [Not Recovered/Not Resolved]
  - Hypoaesthesia [Not Recovered/Not Resolved]
  - Inappropriate schedule of product administration [Not Recovered/Not Resolved]
  - Malaise [Not Recovered/Not Resolved]
  - Multiple sclerosis [Not Recovered/Not Resolved]
  - Panic attack [Not Recovered/Not Resolved]
  - Pneumonia [Not Recovered/Not Resolved]
  - Rash papular [Not Recovered/Not Resolved]
  - Raynaud^s phenomenon [Not Recovered/Not Resolved]
  - Renal cyst [Not Recovered/Not Resolved]
  - Rheumatic disorder [Not Recovered/Not Resolved]
  - Scleroedema [Not Recovered/Not Resolved]
  - Selective IgA immunodeficiency [Not Recovered/Not Resolved]
  - Therapy interrupted [Not Recovered/Not Resolved]
  - Thoracic outlet syndrome [Not Recovered/Not Resolved]
  - Urticaria [Not Recovered/Not Resolved]
  - Vasculitis [Not Recovered/Not Resolved]
